FAERS Safety Report 16842121 (Version 1)
Quarter: 2019Q3

REPORT INFORMATION
  Report Type: Spontaneous
  Country: CA (occurrence: CA)
  Receive Date: 20190923
  Receipt Date: 20190923
  Transmission Date: 20191005
  Serious: Yes (Hospitalization)
  Sender: FDA-Public Use
  Company Number: CA-AUROBINDO-AUR-APL-2019-060872

PATIENT
  Age: 88 Year
  Sex: Female

DRUGS (4)
  1. ESCITALOPRAM [Suspect]
     Active Substance: ESCITALOPRAM OXALATE
     Indication: ANXIETY
     Dosage: 1 DOSAGE FORM, DAILY
     Route: 048
  2. EBIXA [Interacting]
     Active Substance: MEMANTINE HYDROCHLORIDE
     Indication: COGNITIVE DISORDER
     Dosage: UNK
     Route: 065
  3. DEXTROMETHORPHAN HYDROBROMIDE. [Interacting]
     Active Substance: DEXTROMETHORPHAN HYDROBROMIDE
     Indication: COUGH
     Dosage: UNK
     Route: 065
  4. EBIXA [Interacting]
     Active Substance: MEMANTINE HYDROCHLORIDE
     Indication: DEMENTIA ALZHEIMER^S TYPE
     Dosage: 10 MILLIGRAM, DAILY
     Route: 048

REACTIONS (5)
  - Cough [Not Recovered/Not Resolved]
  - Nightmare [Not Recovered/Not Resolved]
  - Dyspnoea [Not Recovered/Not Resolved]
  - Drug interaction [Not Recovered/Not Resolved]
  - Fall [Not Recovered/Not Resolved]
